FAERS Safety Report 9651395 (Version 1)
Quarter: 2013Q4

REPORT INFORMATION
  Report Type: Spontaneous
  Country: CA (occurrence: CA)
  Receive Date: 20131029
  Receipt Date: 20131029
  Transmission Date: 20140711
  Serious: Yes (Other)
  Sender: FDA-Public Use
  Company Number: CA-AMGEN-CANSP2013075585

PATIENT
  Age: 59 Year
  Sex: Male

DRUGS (13)
  1. NEUPOGEN [Suspect]
     Indication: PRODUCT USED FOR UNKNOWN INDICATION
     Dosage: 300 MUG, UNK
     Route: 065
  2. RITUXIMAB [Concomitant]
     Dosage: UNK UNK, Q3WK
  3. CYCLOPHOSPHAMIDE [Concomitant]
     Dosage: UNK UNK, Q3WK
  4. DOXORUBICIN [Concomitant]
     Dosage: UNK UNK, Q3WK
  5. ONCOVIN [Concomitant]
     Dosage: UNK UNK, Q3WK
  6. PREDNISONE [Concomitant]
     Dosage: 50 MG, 1 TAB WITH MEALS BID X 5 DAYS
     Route: 048
  7. LIPITOR [Concomitant]
     Indication: BLOOD CHOLESTEROL
     Dosage: UNK
  8. RAMIPRIL [Concomitant]
     Indication: HYPERTENSION
     Dosage: UNK
  9. ASPIRIN [Concomitant]
     Dosage: 81 MG, UNK
  10. FLOMAX                             /00889901/ [Concomitant]
     Dosage: UNK
  11. RABEPRAZOLE [Concomitant]
     Dosage: 20 MG, QD X 5 DAYS
     Route: 048
  12. ONDANSETRON [Concomitant]
     Dosage: 8 MG, BID X 3 DAYS MORNING OF CHEMO
     Route: 048
  13. ACYCLOVIR                          /00587301/ [Concomitant]
     Dosage: 400 MG, ONE HALF TAB BID
     Route: 048

REACTIONS (6)
  - Weight decreased [Unknown]
  - Chest pain [Not Recovered/Not Resolved]
  - Pain in extremity [Not Recovered/Not Resolved]
  - Oropharyngeal pain [Not Recovered/Not Resolved]
  - Pain in jaw [Not Recovered/Not Resolved]
  - Nausea [Unknown]
